FAERS Safety Report 5864100-1 (Version None)
Quarter: 2008Q3

REPORT INFORMATION
  Report Type: 
  Country: None (occurrence: None)
  Receive Date: 20080829
  Receipt Date: 20080819
  Transmission Date: 20090109
  Serious: Yes (Hospitalization)
  Sender: FDA-Public Use
  Company Number: IE-TYCO HEALTHCARE/MALLINCKRODT-T200800536

PATIENT

DRUGS (3)
  1. OPTIRAY 300 [Suspect]
     Indication: COMPUTERISED TOMOGRAM
     Dosage: 90 ML, SINGLE
     Route: 042
     Dates: start: 20080304, end: 20080304
  2. SYMBICORT [Concomitant]
  3. VENTOLIN [Concomitant]

REACTIONS (3)
  - DYSPNOEA [None]
  - RASH GENERALISED [None]
  - WHEEZING [None]
